FAERS Safety Report 22530862 (Version 1)
Quarter: 2023Q2

REPORT INFORMATION
  Report Type: Spontaneous
  Country: KR (occurrence: KR)
  Receive Date: 20230607
  Receipt Date: 20230607
  Transmission Date: 20230722
  Serious: Yes (Other)
  Sender: FDA-Public Use
  Company Number: KR-ORGANON-O2305KOR003051

PATIENT
  Age: 58 Year
  Sex: Female
  Weight: 52.1 kg

DRUGS (16)
  1. COZAAR [Suspect]
     Active Substance: LOSARTAN POTASSIUM
     Indication: Essential hypertension
     Dosage: 50 MILLIGRAM, QD; DOSAGE FORM: FILM-COATED TABLET
     Route: 048
     Dates: start: 20180824, end: 20181122
  2. LACOSAMIDE [Suspect]
     Active Substance: LACOSAMIDE
     Dosage: 25 MILLIGRAM, IN 0.5 DAYS
     Dates: start: 20180704, end: 20180725
  3. LACOSAMIDE [Suspect]
     Active Substance: LACOSAMIDE
     Dosage: 25 MILLIGRAM, QD
     Dates: start: 20180726, end: 20180904
  4. LACOSAMIDE [Suspect]
     Active Substance: LACOSAMIDE
     Dosage: 12.5 MILLIGRAM, QD
     Dates: start: 20180905, end: 20181121
  5. MONTELUKAST SODIUM [Concomitant]
     Active Substance: MONTELUKAST SODIUM
     Indication: Asthma
     Dosage: UNK, QD; DOSAGE FORM: FILM COATED TABLET
     Route: 048
     Dates: start: 20170726
  6. METFORMIN HYDROCHLORIDE\SITAGLIPTIN PHOSPHATE [Concomitant]
     Active Substance: METFORMIN HYDROCHLORIDE\SITAGLIPTIN PHOSPHATE
     Indication: Essential hypertension
     Dosage: UNK, IN 0.5 DAYS (BID)
     Route: 048
     Dates: start: 20180220, end: 20181122
  7. BENSERAZIDE HYDROCHLORIDE\LEVODOPA [Concomitant]
     Active Substance: BENSERAZIDE HYDROCHLORIDE\LEVODOPA
     Indication: Epilepsy
     Dosage: UNK, IN 0.5 DAYS (BID), DOSAGE FROM: UNCOATED TABLET
     Route: 048
     Dates: start: 20170724, end: 20181221
  8. MEGESTROL ACETATE [Concomitant]
     Active Substance: MEGESTROL ACETATE
     Dosage: 10 MILLILITER, QD
     Dates: start: 20180106, end: 20181122
  9. AMLODIPINE BESYLATE [Concomitant]
     Active Substance: AMLODIPINE BESYLATE
     Indication: Essential hypertension
     Dosage: UNK, QD, DOSAGE FORM: UNCOATED TABLET
     Route: 048
     Dates: start: 20171124, end: 20181122
  10. LEVOTHYROXINE SODIUM [Concomitant]
     Active Substance: LEVOTHYROXINE SODIUM
     Indication: Hypothyroidism
     Dosage: UNK, QD,DOSAGE FORM UNCOATED TABLET; DRUG NAME:LEVOTHYROXINE SODIUM HYDRATE
     Route: 048
     Dates: start: 20170721
  11. BUDESONIDE [Concomitant]
     Active Substance: BUDESONIDE
     Indication: Asthma
     Dosage: 1 FORMULATION IN 0.5 DAYS (BID) VIA ORAL CAVITY; DRUG NAME: BUDESONIDE MICRONIZED
     Route: 048
     Dates: start: 20170827
  12. ALBUTEROL SULFATE [Concomitant]
     Active Substance: ALBUTEROL SULFATE
     Indication: Asthma
     Dosage: 1 FORMULATION, QD
     Route: 048
     Dates: start: 20170728
  13. THIAMINE HYDROCHLORIDE [Concomitant]
     Active Substance: THIAMINE HYDROCHLORIDE
     Indication: Hypovitaminosis
     Dosage: 1 DOSAGE FORM, QD, ROUTE:VEIN
     Route: 042
     Dates: start: 20180725
  14. DONEPEZIL HYDROCHLORIDE [Concomitant]
     Active Substance: DONEPEZIL HYDROCHLORIDE
     Dosage: UNK, QD
     Route: 048
     Dates: start: 20171023
  15. LORAZEPAM [Concomitant]
     Active Substance: LORAZEPAM
     Dosage: UNK, QD, DOSAGE FROM:UNCOATED TABLET
     Route: 048
     Dates: start: 20181106
  16. SERTRALINE HYDROCHLORIDE [Concomitant]
     Active Substance: SERTRALINE HYDROCHLORIDE
     Dosage: UNK, QD
     Route: 048
     Dates: start: 20180309

REACTIONS (3)
  - Seizure [Recovered/Resolved]
  - Asthma [Recovered/Resolved]
  - Somnolence [Unknown]

NARRATIVE: CASE EVENT DATE: 20181030
